FAERS Safety Report 12417881 (Version 3)
Quarter: 2017Q2

REPORT INFORMATION
  Report Type: Spontaneous
  Country: US (occurrence: US)
  Receive Date: 20160531
  Receipt Date: 20170522
  Transmission Date: 20170830
  Serious: Yes (Other)
  Sender: FDA-Public Use
  Company Number: US-AUROBINDO-AUR-APL-2016-06291

PATIENT

DRUGS (3)
  1. MEMANTINE. [Suspect]
     Active Substance: MEMANTINE
     Dosage: 21 MG, ONCE A DAY
     Route: 065
  2. MEMANTINE. [Suspect]
     Active Substance: MEMANTINE
     Indication: DYSKINESIA
     Dosage: 10 MG, TWO TIMES A DAY
     Route: 065
  3. MEMANTINE. [Suspect]
     Active Substance: MEMANTINE
     Dosage: 21 MG, TWO TIMES A DAY XR
     Route: 065

REACTIONS (6)
  - Dystonia [Recovering/Resolving]
  - Toxicity to various agents [Recovering/Resolving]
  - Drug administration error [Recovering/Resolving]
  - Chorea [Recovering/Resolving]
  - Overdose [Recovered/Resolved]
  - Medication error [Recovered/Resolved]
